FAERS Safety Report 19744224 (Version 1)
Quarter: 2021Q3

REPORT INFORMATION
  Report Type: Spontaneous
  Country: US (occurrence: US)
  Receive Date: 20210823
  Receipt Date: 20210823
  Transmission Date: 20211014
  Serious: Yes (Other)
  Sender: FDA-Public Use
  Company Number: None

PATIENT
  Sex: Female

DRUGS (13)
  1. GABAPENTIN. [Concomitant]
     Active Substance: GABAPENTIN
  2. AMOXICILLIN. [Concomitant]
     Active Substance: AMOXICILLIN
  3. NORTRIPTYLIN [Concomitant]
     Active Substance: NORTRIPTYLINE
  4. OXYCODONE [Concomitant]
     Active Substance: OXYCODONE
  5. NUCYNTA ER [Concomitant]
     Active Substance: TAPENTADOL HYDROCHLORIDE
  6. CHLORHEX GLUC [Concomitant]
  7. XELJANZ XR [Suspect]
     Active Substance: TOFACITINIB CITRATE
     Indication: RHEUMATOID ARTHRITIS
     Route: 048
     Dates: start: 20180425
  8. LIDOCAIN [Concomitant]
     Active Substance: LIDOCAINE
  9. CEFDINIR. [Concomitant]
     Active Substance: CEFDINIR
  10. PREGABALIN. [Concomitant]
     Active Substance: PREGABALIN
  11. PROLIA [Concomitant]
     Active Substance: DENOSUMAB
  12. DICLOFENAC GEL [Concomitant]
     Active Substance: DICLOFENAC
  13. DULOXETINE. [Concomitant]
     Active Substance: DULOXETINE

REACTIONS (2)
  - Therapy interrupted [None]
  - Dental operation [None]
